FAERS Safety Report 4960487-2 (Version None)
Quarter: 2006Q2

REPORT INFORMATION
  Report Type: 
  Country: None (occurrence: None)
  Receive Date: 20060403
  Receipt Date: 20060315
  Transmission Date: 20061013
  Serious: Yes (Hospitalization, Other)
  Sender: FDA-Public Use
  Company Number: PHFR2006GB01158

PATIENT
  Age: 24 Year
  Sex: Female

DRUGS (7)
  1. TRILEPTAL [Suspect]
     Indication: EPILEPSY
     Dosage: 600MG MANE + 1575MG NOCTE
     Route: 048
     Dates: start: 20050101
  2. TRILEPTAL [Suspect]
     Dosage: 600 MG MANE, 1500 MG NOCTE
     Route: 048
     Dates: start: 20050302
  3. PHENYTOIN [Concomitant]
     Dosage: UNK, UNK
     Route: 065
     Dates: start: 20051001
  4. FLUOXETINE HCL [Concomitant]
     Indication: DEPRESSION
     Dosage: 20 MG/DAY
     Route: 048
     Dates: start: 20041025
  5. FERROUS SULFATE TAB [Concomitant]
     Indication: IRON DEFICIENCY
     Dosage: 600 MG, TID
     Route: 048
     Dates: start: 20050211
  6. SALBUTAMOL [Concomitant]
     Indication: ASTHMA
     Dates: start: 19991001
  7. BECOTIDE [Concomitant]
     Indication: ASTHMA
     Dates: start: 20051101

REACTIONS (7)
  - ANXIETY [None]
  - CLOSTRIDIAL INFECTION [None]
  - ENCEPHALITIS [None]
  - EPILEPSY [None]
  - OBSESSIVE THOUGHTS [None]
  - SUICIDAL IDEATION [None]
  - WHITE BLOOD CELL COUNT INCREASED [None]
